FAERS Safety Report 5221849-1 (Version None)
Quarter: 2007Q1

REPORT INFORMATION
  Report Type: 
  Country: None (occurrence: None)
  Receive Date: 20070125
  Receipt Date: 20070125
  Transmission Date: 20070707
  Serious: Yes (Hospitalization, Disabling)
  Sender: FDA-Public Use
  Company Number: None

PATIENT
  Age: 83 Year
  Sex: Male
  Weight: 70.7611 kg

DRUGS (1)
  1. ALENDRONATE SODIUM [Suspect]
     Indication: OSTEOPOROSIS
     Dosage: 75 MG WEEKLY PO
     Route: 048
     Dates: start: 19990101, end: 20060905

REACTIONS (7)
  - ABSCESS [None]
  - OSTEOMYELITIS [None]
  - PAIN [None]
  - PATHOLOGICAL FRACTURE [None]
  - PURULENCE [None]
  - SOFT TISSUE INFLAMMATION [None]
  - SWELLING [None]
